FAERS Safety Report 21852486 (Version 1)
Quarter: 2023Q1

REPORT INFORMATION
  Report Type: Other
  Country: US (occurrence: None)
  Receive Date: 20230112
  Receipt Date: 20230112
  Transmission Date: 20230417
  Serious: Yes (Other)
  Sender: FDA-Public Use
  Company Number: US-ROCHE-3261899

PATIENT

DRUGS (1)
  1. COBIMETINIB [Suspect]
     Active Substance: COBIMETINIB
     Indication: Chronic myelomonocytic leukaemia
     Dosage: EACH DOSE CONSISTS OF THREE 20 MG TABLETS (60 MG) AND SHOULD BE TAKEN ONCE DAILY FOR 21 CONSECUTIVE
     Route: 048

REACTIONS (1)
  - Mucosal inflammation [Unknown]
